FAERS Safety Report 20077206 (Version 1)
Quarter: 2021Q4

REPORT INFORMATION
  Report Type: Spontaneous
  Country: DE (occurrence: DE)
  Receive Date: 20211116
  Receipt Date: 20211116
  Transmission Date: 20220303
  Serious: Yes (Life-Threatening, Other)
  Sender: FDA-Public Use
  Company Number: None

PATIENT
  Age: 48 Year
  Sex: Female

DRUGS (10)
  1. LORAZEPAM [Suspect]
     Active Substance: LORAZEPAM
     Dosage: 1.5-3.5MG/D
     Dates: start: 20201229
  2. TRAZODONE HYDROCHLORIDE [Suspect]
     Active Substance: TRAZODONE HYDROCHLORIDE
     Dosage: 100 MG, 1X/DAY
     Dates: start: 20210111, end: 20210120
  3. CLOZAPINE [Suspect]
     Active Substance: CLOZAPINE
     Dosage: 0-450 MG/D
     Dates: start: 20201025, end: 20210131
  4. CLOZAPINE [Suspect]
     Active Substance: CLOZAPINE
     Dosage: 475 MG, 1X/DAY
     Dates: start: 20210201, end: 20210210
  5. CLOZAPINE [Suspect]
     Active Substance: CLOZAPINE
     Dosage: 500 MG, 1X/DAY
     Dates: start: 20210211, end: 20210214
  6. CLOZAPINE [Suspect]
     Active Substance: CLOZAPINE
     Dosage: 525-550MG/D
     Dates: start: 20210215
  7. ARIPIPRAZOLE [Suspect]
     Active Substance: ARIPIPRAZOLE
     Dosage: 15 MG, 1X/DAY
     Dates: start: 20201127, end: 20210114
  8. ARIPIPRAZOLE [Suspect]
     Active Substance: ARIPIPRAZOLE
     Dosage: 10 MG, 1X/DAY
     Dates: start: 20210115, end: 20210120
  9. ARIPIPRAZOLE [Suspect]
     Active Substance: ARIPIPRAZOLE
     Dosage: 15 MG, 1X/DAY
     Dates: start: 20210121
  10. POLYETHYLENE GLYCOLS [Concomitant]
     Active Substance: POLYETHYLENE GLYCOLS
     Dates: start: 20201028

REACTIONS (1)
  - Hyponatraemia [Recovered/Resolved]

NARRATIVE: CASE EVENT DATE: 20210105
